FAERS Safety Report 14558896 (Version 1)
Quarter: 2020Q3

REPORT INFORMATION
  Report Type: Spontaneous
  Country: GB (occurrence: FR)
  Receive Date: 20180221
  Receipt Date: 20180221
  Transmission Date: 20201104
  Serious: Yes (Life-Threatening)
  Sender: FDA-Public Use
  Company Number: FR-FRESENIUS KABI-FK201801871

PATIENT
  Age: 68 Year
  Sex: Female
  Weight: 55 kg

DRUGS (12)
  1. MIDAZOLAM HYDROCHLORIDE. [Suspect]
     Active Substance: MIDAZOLAM HYDROCHLORIDE
     Indication: INDUCTION OF ANAESTHESIA
     Route: 042
     Dates: start: 20170516, end: 20170516
  2. MORPHINE [Suspect]
     Active Substance: MORPHINE
     Indication: INDUCTION OF ANAESTHESIA
     Route: 042
     Dates: start: 20170516, end: 20170516
  3. DROPERIDOL. [Suspect]
     Active Substance: DROPERIDOL
     Indication: PROPHYLAXIS OF NAUSEA AND VOMITING
     Route: 042
     Dates: start: 20170516, end: 20170516
  4. EPHEDRINE. [Suspect]
     Active Substance: EPHEDRINE
     Indication: INDUCTION OF ANAESTHESIA
     Route: 042
     Dates: start: 20170516, end: 20170516
  5. TRAMADOL BASE [Suspect]
     Active Substance: TRAMADOL
     Indication: PAIN
     Route: 042
     Dates: start: 20170516, end: 20170516
  6. KETAMINE [Suspect]
     Active Substance: KETAMINE
     Indication: INDUCTION OF ANAESTHESIA
     Route: 042
     Dates: start: 20170516, end: 20170516
  7. KETOPROFENE [Suspect]
     Active Substance: KETOPROFEN
     Indication: PAIN
     Route: 042
     Dates: start: 20170516, end: 20170516
  8. REMIFENTANYL BASE [Suspect]
     Active Substance: REMIFENTANIL
     Indication: INDUCTION OF ANAESTHESIA
     Route: 042
     Dates: start: 20170516, end: 20170516
  9. PROPOFOL (MANUFACTURER UNKNOWN) [Suspect]
     Active Substance: PROPOFOL
     Indication: INDUCTION OF ANAESTHESIA
     Route: 042
     Dates: start: 20170516, end: 20170516
  10. PARACETAMOL (MANUFACTURER UNKNOWN) [Suspect]
     Active Substance: ACETAMINOPHEN
     Indication: PAIN
     Route: 042
     Dates: start: 20170516, end: 20170516
  11. DEXAMETHASONE. [Suspect]
     Active Substance: DEXAMETHASONE
     Indication: ALLERGY PROPHYLAXIS
     Route: 042
     Dates: start: 20170516, end: 20170516
  12. NEFOPAM [Suspect]
     Active Substance: NEFOPAM
     Indication: PAIN
     Route: 042
     Dates: start: 20170516, end: 20170516

REACTIONS (1)
  - Pancreatitis necrotising [Recovered/Resolved]

NARRATIVE: CASE EVENT DATE: 20170516
